FAERS Safety Report 9668752 (Version 2)
Quarter: 2013Q4

REPORT INFORMATION
  Report Type: Spontaneous
  Country: JP (occurrence: JP)
  Receive Date: 20131105
  Receipt Date: 20131115
  Transmission Date: 20140711
  Serious: Yes (Death)
  Sender: FDA-Public Use
  Company Number: JP-JNJFOC-20131019314

PATIENT
  Age: 86 Year
  Sex: Female
  Weight: 43 kg

DRUGS (10)
  1. XARELTO [Suspect]
     Indication: ATRIAL FIBRILLATION
     Route: 048
     Dates: start: 20130911
  2. XARELTO [Suspect]
     Indication: CEREBROVASCULAR ACCIDENT PROPHYLAXIS
     Route: 048
     Dates: start: 20130911
  3. ALOSENN [Concomitant]
     Indication: CONSTIPATION
     Route: 048
     Dates: start: 20130911
  4. RASILEZ [Concomitant]
     Indication: HYPERTENSION
     Route: 048
     Dates: start: 20110802
  5. NEXIUM [Concomitant]
     Indication: GASTROOESOPHAGEAL REFLUX DISEASE
     Route: 048
     Dates: start: 20121226
  6. MAINTATE [Concomitant]
     Indication: CARDIAC FAILURE
     Route: 048
     Dates: start: 20100303
  7. ATELEC [Concomitant]
     Indication: HYPERTENSION
     Route: 048
     Dates: start: 20130618
  8. ROZEREM [Concomitant]
     Indication: INSOMNIA
     Route: 048
     Dates: start: 20130118
  9. PAXIL [Concomitant]
     Indication: DEPRESSION
     Route: 048
  10. OPALMON [Concomitant]
     Indication: THROMBOANGIITIS OBLITERANS
     Route: 048
     Dates: start: 20130521

REACTIONS (1)
  - Cerebral artery embolism [Fatal]
